FAERS Safety Report 6500371-6 (Version None)
Quarter: 2009Q4

REPORT INFORMATION
  Report Type: 
  Country: None (occurrence: None)
  Receive Date: 20091216
  Receipt Date: 20091203
  Transmission Date: 20100525
  Serious: Yes (Other)
  Sender: FDA-Public Use
  Company Number: PHNR2006AU00714

PATIENT
  Sex: Male

DRUGS (7)
  1. CLOZARIL [Suspect]
     Indication: SCHIZOPHRENIA
     Dosage: 12.5-300 MG DAILY
     Dates: start: 20060403
  2. CLOZARIL [Suspect]
     Dosage: 500 MG
     Dates: start: 20060501
  3. CLOZARIL [Suspect]
     Dosage: 450 MG DAILY
     Route: 048
  4. CLOZARIL [Suspect]
     Dosage: 350 MG DAILY
     Route: 048
  5. CLOZARIL [Suspect]
     Dosage: 200 MG
  6. OLANZAPINE [Concomitant]
  7. VALPROATE SODIUM [Concomitant]

REACTIONS (7)
  - ALANINE AMINOTRANSFERASE INCREASED [None]
  - ASPARTATE AMINOTRANSFERASE INCREASED [None]
  - BLOOD ALKALINE PHOSPHATASE INCREASED [None]
  - GAMMA-GLUTAMYLTRANSFERASE INCREASED [None]
  - HEPATIC ENZYME INCREASED [None]
  - PROTEIN TOTAL INCREASED [None]
  - PYREXIA [None]
